FAERS Safety Report 11307743 (Version 1)
Quarter: 2015Q3

REPORT INFORMATION
  Report Type: Spontaneous
  Country: GB (occurrence: GB)
  Receive Date: 20150724
  Receipt Date: 20150724
  Transmission Date: 20151125
  Serious: Yes (Other)
  Sender: FDA-Public Use
  Company Number: GB-MICRO LABS LIMITED-BB2015-00769

PATIENT
  Age: 61 Year
  Sex: Male
  Weight: 68.94 kg

DRUGS (5)
  1. AMLODIPINE [Concomitant]
     Active Substance: AMLODIPINE BESYLATE
     Indication: PRODUCT USED FOR UNKNOWN INDICATION
     Route: 065
  2. BISOPROLOL [Concomitant]
     Active Substance: BISOPROLOL
     Indication: PRODUCT USED FOR UNKNOWN INDICATION
     Route: 065
  3. ASPIRIN. [Concomitant]
     Active Substance: ASPIRIN
     Indication: PRODUCT USED FOR UNKNOWN INDICATION
     Route: 065
  4. SIMVASTATIN. [Suspect]
     Active Substance: SIMVASTATIN
     Indication: BLOOD CHOLESTEROL INCREASED
     Route: 048
  5. FENOFIBRATE. [Concomitant]
     Active Substance: FENOFIBRATE
     Indication: PRODUCT USED FOR UNKNOWN INDICATION
     Dosage: MICRONISED.
     Route: 065

REACTIONS (10)
  - Dyspnoea [Unknown]
  - Cataract [Recovered/Resolved with Sequelae]
  - Tremor [Recovering/Resolving]
  - Muscular weakness [Recovered/Resolved with Sequelae]
  - Muscle spasms [Unknown]
  - Pain [Unknown]
  - Limb discomfort [Unknown]
  - Myalgia [Recovered/Resolved with Sequelae]
  - Musculoskeletal stiffness [Unknown]
  - Tunnel vision [Unknown]
